FAERS Safety Report 26075313 (Version 1)
Quarter: 2025Q4

REPORT INFORMATION
  Report Type: Spontaneous
  Country: US (occurrence: US)
  Receive Date: 20251121
  Receipt Date: 20251121
  Transmission Date: 20260117
  Serious: Yes (Other)
  Sender: BAYER HEALTHCARE LLC
  Company Number: US-BAYER-2025A154001

PATIENT
  Sex: Female

DRUGS (1)
  1. MIRAFAST SOFT CHEWS [Suspect]
     Active Substance: MAGNESIUM HYDROXIDE
     Indication: Constipation

REACTIONS (3)
  - Pain [None]
  - Diarrhoea [None]
  - Colitis [None]
